FAERS Safety Report 12484223 (Version 1)
Quarter: 2016Q2

REPORT INFORMATION
  Report Type: Spontaneous
  Country: US (occurrence: None)
  Receive Date: 20160620
  Receipt Date: 20160620
  Transmission Date: 20160815
  Serious: Yes (Hospitalization)
  Sender: FDA-Public Use
  Company Number: None

PATIENT
  Age: 57 Year
  Sex: Male
  Weight: 83.2 kg

DRUGS (1)
  1. ALLOPURINOL. [Suspect]
     Active Substance: ALLOPURINOL
     Indication: GOUT
     Route: 048
     Dates: start: 20160226, end: 20160324

REACTIONS (7)
  - Pyrexia [None]
  - Neutropenia [None]
  - Erythema multiforme [None]
  - Diverticulitis [None]
  - Sepsis [None]
  - Dysuria [None]
  - Rash [None]

NARRATIVE: CASE EVENT DATE: 20160321
